FAERS Safety Report 20753483 (Version 1)
Quarter: 2022Q2

REPORT INFORMATION
  Report Type: Spontaneous
  Country: US (occurrence: None)
  Receive Date: 20220426
  Receipt Date: 20220426
  Transmission Date: 20220721
  Serious: No
  Sender: FDA-Public Use
  Company Number: US-ROCHE-2838429

PATIENT
  Age: 74 Year
  Sex: Male

DRUGS (1)
  1. ESBRIET [Suspect]
     Active Substance: PIRFENIDONE
     Indication: Idiopathic pulmonary fibrosis
     Dosage: THREE 267 MG PILLS THREE TIMES A DAY WITH MEALS
     Route: 048
     Dates: start: 20210203

REACTIONS (7)
  - Urticaria [Recovered/Resolved]
  - Pruritus [Recovered/Resolved]
  - Abdominal discomfort [Recovered/Resolved]
  - Malaise [Recovered/Resolved]
  - Nasal oedema [Unknown]
  - Ear swelling [Unknown]
  - Rash [Recovered/Resolved]

NARRATIVE: CASE EVENT DATE: 20210329
